FAERS Safety Report 4844953-6 (Version None)
Quarter: 2005Q4

REPORT INFORMATION
  Report Type: 
  Country: None (occurrence: None)
  Receive Date: 20051128
  Receipt Date: 20051111
  Transmission Date: 20060501
  Serious: Yes (Hospitalization)
  Sender: FDA-Public Use
  Company Number: PHBS2005AT13298

PATIENT
  Age: 80 Year
  Sex: Male

DRUGS (4)
  1. VISUDYNE [Suspect]
     Indication: MACULAR DEGENERATION
     Dosage: 6 MG/M^2 ONCE IV
     Route: 042
     Dates: start: 20050704, end: 20050704
  2. VOLON A [Suspect]
     Dosage: 40 MG DAILY
  3. THROMBO ASS [Concomitant]
  4. XALATAN [Concomitant]

REACTIONS (4)
  - CHORIORETINAL DISORDER [None]
  - EYE HAEMORRHAGE [None]
  - EYE PENETRATION [None]
  - VISUAL ACUITY REDUCED [None]
